FAERS Safety Report 4855806-1 (Version None)
Quarter: 2005Q4

REPORT INFORMATION
  Report Type: 
  Country: None (occurrence: None)
  Receive Date: 20051215
  Receipt Date: 20051215
  Transmission Date: 20060501
  Serious: Yes (Other)
  Sender: FDA-Public Use
  Company Number: None

PATIENT
  Age: 47 Year
  Sex: Male
  Weight: 104.3273 kg

DRUGS (1)
  1. SPORANOX [Suspect]
     Indication: LOCALISED INFECTION
     Dosage: 2 PILLS A DAY TWICE DAILY PO
     Route: 048
     Dates: start: 20050627, end: 20051015

REACTIONS (8)
  - ABDOMINAL PAIN [None]
  - APPETITE DISORDER [None]
  - CARDIAC FAILURE CONGESTIVE [None]
  - FATIGUE [None]
  - HEPATOCELLULAR DAMAGE [None]
  - LISTLESS [None]
  - SLEEP DISORDER [None]
  - WEIGHT INCREASED [None]
